FAERS Safety Report 10246105 (Version 1)
Quarter: 2014Q2

REPORT INFORMATION
  Report Type: Spontaneous
  Country: US (occurrence: None)
  Receive Date: 20140617
  Receipt Date: 20140617
  Transmission Date: 20141212
  Serious: Yes (Disabling)
  Sender: FDA-Public Use
  Company Number: None

PATIENT
  Age: 33 Year
  Sex: Male
  Weight: 62.6 kg

DRUGS (1)
  1. TIZANIDINE [Suspect]
     Indication: BACK PAIN
     Route: 048

REACTIONS (7)
  - Hallucination [None]
  - Pain [None]
  - Anxiety [None]
  - Aggression [None]
  - Cognitive disorder [None]
  - Feeling abnormal [None]
  - Mental disorder [None]
